FAERS Safety Report 7969995-3 (Version None)
Quarter: 2011Q4

REPORT INFORMATION
  Report Type: 
  Country: None (occurrence: None)
  Receive Date: 20111212
  Receipt Date: 20111130
  Transmission Date: 20120403
  Serious: Yes (Hospitalization)
  Sender: FDA-Public Use
  Company Number: BR-US-EMD SERONO, INC.-7094823

PATIENT
  Sex: Female

DRUGS (8)
  1. PROPRANOLOL [Concomitant]
  2. FOLIC ACID [Concomitant]
  3. FERROUS SULFATE TAB [Concomitant]
  4. CLONAZEPAM [Concomitant]
  5. FLUOXETINE [Concomitant]
  6. HYDROCHLOROTHIAZIDE [Concomitant]
  7. REBIF [Suspect]
     Indication: RELAPSING-REMITTING MULTIPLE SCLEROSIS
  8. LEVOTHYROXINE SODIUM [Concomitant]

REACTIONS (1)
  - MULTIPLE SCLEROSIS RELAPSE [None]
